FAERS Safety Report 5873297-9 (Version None)
Quarter: 2008Q3

REPORT INFORMATION
  Report Type: 
  Country: None (occurrence: None)
  Receive Date: 20080908
  Receipt Date: 20080826
  Transmission Date: 20090109
  Serious: Yes (Other)
  Sender: FDA-Public Use
  Company Number: GB-ALLERGAN-0810961US

PATIENT
  Age: 8 Month
  Sex: Male

DRUGS (3)
  1. TIMOLOL MALEATE SOL UNSPECIFID [Interacting]
     Indication: DRUG USE FOR UNKNOWN INDICATION
     Dosage: 4 GTT, SINGLE
     Route: 045
  2. PROPRANOLOL [Suspect]
     Indication: SUPRAVENTRICULAR TACHYCARDIA
     Dosage: 10 MG, BID
  3. SODIUM CHLORIDE [Concomitant]
     Route: 045

REACTIONS (8)
  - BRADYCARDIA [None]
  - DRUG INTERACTION [None]
  - HYPOTENSION [None]
  - HYPOTONIA [None]
  - LETHARGY [None]
  - MIOSIS [None]
  - UNRESPONSIVE TO STIMULI [None]
  - WRONG DRUG ADMINISTERED [None]
